FAERS Safety Report 9917028 (Version 2)
Quarter: 2014Q2

REPORT INFORMATION
  Report Type: Spontaneous
  Country: US (occurrence: US)
  Receive Date: 20140221
  Receipt Date: 20140429
  Transmission Date: 20141212
  Serious: Yes (Other)
  Sender: FDA-Public Use
  Company Number: US-GLAXOSMITHKLINE-A1061792A

PATIENT
  Sex: Male

DRUGS (4)
  1. IMITREX [Suspect]
     Indication: MIGRAINE
     Route: 065
  2. AMERGE [Suspect]
     Indication: MIGRAINE
     Route: 065
  3. MIGRAINE MEDICATION [Suspect]
     Indication: MIGRAINE
     Route: 065
  4. RELPAX [Suspect]
     Indication: MIGRAINE
     Route: 065

REACTIONS (6)
  - Gastric varices [Not Recovered/Not Resolved]
  - Hepatic cirrhosis [Not Recovered/Not Resolved]
  - Portal hypertension [Not Recovered/Not Resolved]
  - Pulmonary hypertension [Not Recovered/Not Resolved]
  - Drug ineffective [Unknown]
  - Migraine [Unknown]
